FAERS Safety Report 8722267 (Version 4)
Quarter: 2013Q1

REPORT INFORMATION
  Report Type: Report from Study
  Country: JP (occurrence: JP)
  Receive Date: 20120814
  Receipt Date: 20130311
  Transmission Date: 20140127
  Serious: Yes (Other)
  Sender: FDA-Public Use
  Company Number: JP-009507513-2012SP026951

PATIENT
  Age: 69 Year
  Sex: Male
  Weight: 88 kg

DRUGS (22)
  1. PEGINTRON [Suspect]
     Indication: CHRONIC HEPATITIS C
     Dosage: 1.5MCG/KG/WEEK
     Route: 058
     Dates: start: 20120309, end: 20120420
  2. PEGINTRON [Suspect]
     Dosage: 0.6MCG/KG/WEEK
     Route: 058
     Dates: start: 20120427, end: 20120427
  3. PEGINTRON [Suspect]
     Dosage: 0.6MCG/KG/WEEK
     Route: 058
     Dates: start: 20120518, end: 20120525
  4. PEGINTRON [Suspect]
     Dosage: 0.75MCG/KG/WEEK
     Route: 058
     Dates: start: 20120601, end: 20120622
  5. PEGINTRON [Suspect]
     Dosage: 1.0 MICROGRAM PER KILOGRAM, QW
     Route: 058
     Dates: start: 20120629, end: 20120706
  6. PEGINTRON [Suspect]
     Dosage: 1.25 MICROGRAM PER KILOGRAM, QW
     Route: 058
     Dates: start: 20120713, end: 20120720
  7. PEGINTRON [Suspect]
     Dosage: 1.37 MICROGRAM PER KILOGRAM, QW
     Route: 058
     Dates: start: 20120727, end: 20120803
  8. PEGINTRON [Suspect]
     Dosage: 1.5 MICROGRAM PER KILOGRAM, QW
     Route: 058
     Dates: start: 20120810
  9. REBETOL [Suspect]
     Indication: CHRONIC HEPATITIS C
     Dosage: 1000 MG, QD
     Route: 048
     Dates: start: 20120309, end: 20120412
  10. REBETOL [Suspect]
     Dosage: 800 MG, QD
     Route: 048
     Dates: start: 20120413, end: 20120426
  11. REBETOL [Suspect]
     Dosage: 200 MG, QD
     Route: 048
     Dates: start: 20120615, end: 20120628
  12. REBETOL [Suspect]
     Dosage: 400 MG, QD
     Route: 048
     Dates: start: 20120629, end: 20120726
  13. REBETOL [Suspect]
     Dosage: 600 MG, QD
     Route: 048
     Dates: start: 20120727, end: 20120809
  14. REBETOL [Suspect]
     Dosage: 700MG/DAY (IT IS EVERY OTHER DAY AS  FOR 3T AND 4T)
     Route: 048
     Dates: start: 20120810
  15. TELAVIC [Suspect]
     Indication: CHRONIC HEPATITIS C
     Dosage: 2250 MG, QD
     Route: 048
     Dates: start: 20120309, end: 20120426
  16. TELAVIC [Suspect]
     Dosage: 750 MG, QD
     Route: 048
     Dates: start: 20120427, end: 20120501
  17. TELAVIC [Suspect]
     Dosage: 750 MG, QD
     Route: 048
     Dates: start: 20120525, end: 20120628
  18. URSO [Concomitant]
     Indication: CHRONIC HEPATITIS C
     Dosage: 300 MG, QD
     Route: 048
     Dates: end: 20120326
  19. BEZAFIBRATE [Concomitant]
     Indication: HYPERLIPIDAEMIA
     Dosage: TRADE NAME UNKNOWN
     Route: 048
  20. LANIZAC [Concomitant]
     Indication: GASTRIC ULCER
     Dosage: 300 MG, QD
     Route: 048
  21. CO DIO [Concomitant]
     Indication: HYPERTENSION
     Dosage: 1 DF, QD
     Route: 048
     Dates: end: 20120314
  22. CO DIO [Concomitant]
     Dosage: 1 DF, ONCE
     Route: 048
     Dates: start: 20120315

REACTIONS (4)
  - Anaemia [Recovering/Resolving]
  - Platelet count decreased [Recovered/Resolved]
  - Haemoglobin decreased [Not Recovered/Not Resolved]
  - Platelet count decreased [Recovered/Resolved]
